FAERS Safety Report 7645853-9 (Version None)
Quarter: 2011Q3

REPORT INFORMATION
  Report Type: 
  Country: None (occurrence: None)
  Receive Date: 20110729
  Receipt Date: 20110727
  Transmission Date: 20111222
  Serious: Yes (Hospitalization, Other)
  Sender: FDA-Public Use
  Company Number: CA-ABBOTT-11P-028-0730464-00

PATIENT
  Sex: Male
  Weight: 65.83 kg

DRUGS (2)
  1. VITAMIN B-12 [Concomitant]
     Indication: VITAMIN SUPPLEMENTATION
     Route: 058
     Dates: start: 20100701
  2. HUMIRA [Suspect]
     Indication: CROHN'S DISEASE
     Route: 058
     Dates: start: 20100707, end: 20110406

REACTIONS (6)
  - INTESTINAL DILATATION [None]
  - COLONIC FISTULA [None]
  - ILEAL STENOSIS [None]
  - ILEAL FISTULA [None]
  - CROHN'S DISEASE [None]
  - DRUG INEFFECTIVE [None]
